FAERS Safety Report 6839959-1 (Version None)
Quarter: 2010Q3

REPORT INFORMATION
  Report Type: 
  Country: None (occurrence: None)
  Receive Date: 20100714
  Receipt Date: 20100701
  Transmission Date: 20110219
  Serious: Yes (Hospitalization)
  Sender: FDA-Public Use
  Company Number: US-CELGENEUS-163-21880-10070223

PATIENT
  Sex: Male

DRUGS (3)
  1. REVLIMID [Suspect]
     Indication: MULTIPLE MYELOMA
     Route: 048
     Dates: start: 20100604
  2. HYDRALAZINE HCL [Concomitant]
     Indication: PRODUCT USED FOR UNKNOWN INDICATION
     Route: 065
  3. HYDRALAZINE HCL [Concomitant]
     Route: 065
     Dates: start: 20100624

REACTIONS (2)
  - CHILLS [None]
  - VENTRICULAR TACHYCARDIA [None]
